FAERS Safety Report 4683181-4 (Version None)
Quarter: 2005Q2

REPORT INFORMATION
  Report Type: 
  Country: None (occurrence: None)
  Receive Date: 20050602
  Receipt Date: 20050309
  Transmission Date: 20051028
  Serious: No
  Sender: FDA-Public Use
  Company Number: USA050392802

PATIENT
  Age: 49 Year
  Sex: Female

DRUGS (5)
  1. CYMBALTA [Suspect]
     Indication: BIPOLAR I DISORDER
     Dosage: 40 MG DAY
     Dates: start: 20050125
  2. LITHIUM CITRATE [Concomitant]
  3. VALPROIC ACID [Concomitant]
  4. ATENOLOL [Concomitant]
  5. SYNTHROID [Concomitant]

REACTIONS (4)
  - EYE PAIN [None]
  - LACRIMATION INCREASED [None]
  - PHOTOPHOBIA [None]
  - VISION BLURRED [None]
